FAERS Safety Report 13619611 (Version 1)
Quarter: 2017Q2

REPORT INFORMATION
  Report Type: Report from Study
  Country: US (occurrence: US)
  Receive Date: 20170606
  Receipt Date: 20170606
  Transmission Date: 20170830
  Serious: No
  Sender: FDA-Public Use
  Company Number: US-AMGEN-USASL2017048396

PATIENT
  Age: 72 Year
  Sex: Female

DRUGS (19)
  1. INSULIN [Concomitant]
     Active Substance: INSULIN NOS
     Dosage: (31 G X 5/16^ 0.3 ML), USE AS DIRECTED
     Route: 065
     Dates: start: 20140325
  2. CALCIUM 600 + D [Concomitant]
     Active Substance: CALCIUM\VITAMIN D
     Dosage: 1 DF, BID (600-400 MG)
     Route: 048
     Dates: start: 20161019
  3. PREDNISONE. [Concomitant]
     Active Substance: PREDNISONE
     Indication: RHEUMATOID ARTHRITIS
     Dosage: UNK
  4. HUMALOG [Concomitant]
     Active Substance: INSULIN LISPRO
     Indication: TYPE 2 DIABETES MELLITUS
     Dosage: 15 UNIT, TID (100 UNIT/ML)
     Route: 058
     Dates: start: 20130322
  5. INSULIN [Concomitant]
     Active Substance: INSULIN NOS
     Dosage: (32G X 4MM) USE AS DIRECTED
     Dates: start: 20150408
  6. PROCRIT [Suspect]
     Active Substance: ERYTHROPOIETIN
     Indication: ANAEMIA OF CHRONIC DISEASE
     Dosage: 20000 UNIT, QWK
     Route: 065
  7. FOLIC ACID. [Concomitant]
     Active Substance: FOLIC ACID
     Dosage: 1 MG, QD
     Route: 065
     Dates: start: 20110517
  8. INSULIN [Concomitant]
     Active Substance: INSULIN NOS
     Dosage: (31G X 5/16^, 0.3 ML),TID
     Route: 065
     Dates: start: 20150212
  9. LANTUS [Concomitant]
     Active Substance: INSULIN GLARGINE
     Indication: TYPE 2 DIABETES MELLITUS
     Dosage: 100 UNIT/ML (6 TO 10 UNITS AT BEDTIME)
     Route: 058
  10. BUMEX [Concomitant]
     Active Substance: BUMETANIDE
     Dosage: 2 MG, BID
     Route: 048
     Dates: start: 20130222
  11. CARVEDILOL. [Concomitant]
     Active Substance: CARVEDILOL
     Dosage: 50 MG, BID
     Route: 048
     Dates: start: 20140202
  12. CLONIDINE HCL [Concomitant]
     Active Substance: CLONIDINE HYDROCHLORIDE
     Dosage: 0.1 MG, BID
     Route: 048
     Dates: start: 20160929
  13. ALENDRONATE SODIUM. [Concomitant]
     Active Substance: ALENDRONATE SODIUM
     Indication: BONE DISORDER
     Dosage: 70 MG, QWK (AN EMPTY STOMACH)
     Route: 048
     Dates: start: 20161019
  14. AMLODIPINE [Concomitant]
     Active Substance: AMLODIPINE BESYLATE
     Indication: HYPERTENSIVE HEART DISEASE
     Dosage: UNK
  15. BUMEX [Concomitant]
     Active Substance: BUMETANIDE
     Dosage: 1 MG, BID
     Route: 048
  16. HYDRALAZINE HCL [Concomitant]
     Active Substance: HYDRALAZINE HYDROCHLORIDE
     Dosage: 100 MG, BID
     Route: 048
     Dates: start: 20140318
  17. INSULIN [Concomitant]
     Active Substance: INSULIN NOS
     Dosage: (31G X 5MM), TID
     Route: 065
     Dates: start: 20130415
  18. ALLOPURINOL. [Concomitant]
     Active Substance: ALLOPURINOL
     Dosage: 200 MG, QD
     Route: 048
     Dates: start: 20130404
  19. INSULIN [Concomitant]
     Active Substance: INSULIN NOS
     Indication: TYPE 2 DIABETES MELLITUS
     Dosage: UNK
     Route: 065

REACTIONS (2)
  - Hypovolaemia [Not Recovered/Not Resolved]
  - Fatigue [Not Recovered/Not Resolved]
